FAERS Safety Report 8446254 (Version 4)
Quarter: 2013Q2

REPORT INFORMATION
  Report Type: Spontaneous
  Country: FR (occurrence: FR)
  Receive Date: 20120307
  Receipt Date: 20130423
  Transmission Date: 20140414
  Serious: Yes (Hospitalization)
  Sender: FDA-Public Use
  Company Number: PHHY2012FR018381

PATIENT
  Age: 48 Year
  Sex: Male

DRUGS (15)
  1. VOLTARENE [Suspect]
     Dosage: 75 MG, DAILY
     Route: 048
     Dates: start: 201011
  2. ANAFRANIL [Suspect]
     Dosage: 100 MG, DAILY
     Route: 048
     Dates: start: 20110402
  3. CELIPROLOL [Suspect]
     Dosage: 200 MG, DAILY
     Route: 048
     Dates: start: 2005
  4. DAFALGAN [Suspect]
     Dosage: 3 G, DAILY
     Route: 048
     Dates: start: 2005
  5. DAFALGAN [Suspect]
     Route: 048
     Dates: start: 201011
  6. MOPRAL [Suspect]
     Route: 048
     Dates: start: 2005
  7. SKENAN [Suspect]
     Route: 048
     Dates: start: 200607
  8. SKENAN [Suspect]
     Dates: start: 201011
  9. MOTILIUM [Suspect]
     Route: 048
     Dates: start: 200607
  10. ACTISKENAN [Suspect]
     Route: 048
     Dates: start: 200610
  11. ACTISKENAN [Suspect]
     Route: 048
     Dates: start: 201011
  12. PAMIDRONIC ACID [Suspect]
     Dosage: 60 MG, UNK
     Route: 042
     Dates: start: 20111017
  13. PAMIDRONIC ACID [Suspect]
     Dosage: 60 MG, UNK
     Route: 042
     Dates: start: 20111102
  14. PAMIDRONIC ACID [Suspect]
     Dosage: 60 MG, UNK
     Route: 042
     Dates: start: 20111114
  15. PAMIDRONIC ACID [Suspect]
     Dosage: 60 MG, UNK
     Route: 042
     Dates: start: 20111212, end: 20111212

REACTIONS (10)
  - Scleroderma [Not Recovered/Not Resolved]
  - Dry skin [Not Recovered/Not Resolved]
  - Nodule [Not Recovered/Not Resolved]
  - Cholestasis [Not Recovered/Not Resolved]
  - C-reactive protein increased [Not Recovered/Not Resolved]
  - Salivary gland disorder [Not Recovered/Not Resolved]
  - Sialoadenitis [Not Recovered/Not Resolved]
  - Pulmonary arterial hypertension [Not Recovered/Not Resolved]
  - Borrelia infection [Not Recovered/Not Resolved]
  - Hypergammaglobulinaemia [Not Recovered/Not Resolved]
